FAERS Safety Report 7230747-3 (Version None)
Quarter: 2011Q1

REPORT INFORMATION
  Report Type: 
  Country: None (occurrence: None)
  Receive Date: 20110118
  Receipt Date: 20110112
  Transmission Date: 20110831
  Serious: Yes (Other)
  Sender: FDA-Public Use
  Company Number: US-PFIZER INC-US-WYE-H16689010

PATIENT
  Sex: Female
  Weight: 64.4 kg

DRUGS (2)
  1. EFFEXOR [Suspect]
     Indication: POST-TRAUMATIC STRESS DISORDER
     Dosage: 150 MG, 2X/DAY
     Route: 048
     Dates: start: 20000101
  2. PREMPRO [Suspect]
     Indication: MENOPAUSAL SYMPTOMS
     Dosage: 0.625/2.5 MG 1X/DAY
     Route: 048
     Dates: start: 20080101

REACTIONS (3)
  - SPINAL FRACTURE [None]
  - HAEMORRHAGE [None]
  - RECTOSIGMOID CANCER [None]
